FAERS Safety Report 6156804-0 (Version None)
Quarter: 2009Q2

REPORT INFORMATION
  Report Type: 
  Country: None (occurrence: None)
  Receive Date: 20090416
  Receipt Date: 20090413
  Transmission Date: 20091009
  Serious: Yes (Death, Other)
  Sender: FDA-Public Use
  Company Number: PHHY2009JP11807

PATIENT
  Sex: Female

DRUGS (3)
  1. ZOLEDRONIC ACID [Suspect]
     Indication: ADENOCARCINOMA
     Dosage: 4 MG (SINGLE DOSE)
     Route: 042
     Dates: start: 20080109, end: 20080109
  2. MEROPEN [Concomitant]
     Dosage: 1.0G
     Route: 042
     Dates: start: 20080109, end: 20080112
  3. UNASYN [Concomitant]
     Dosage: 6G
     Route: 042
     Dates: start: 20080113, end: 20080124

REACTIONS (3)
  - HYPOCALCAEMIA [None]
  - MALIGNANT NEOPLASM PROGRESSION [None]
  - RENAL IMPAIRMENT [None]
